FAERS Safety Report 4437989-0 (Version None)
Quarter: 2004Q3

REPORT INFORMATION
  Report Type: 
  Country: None (occurrence: None)
  Receive Date: 20040831
  Receipt Date: 20040405
  Transmission Date: 20050211
  Serious: No
  Sender: FDA-Public Use
  Company Number: US-GLAXOSMITHKLINE-A0506289A

PATIENT
  Age: 63 Year
  Sex: Female
  Weight: 101.8 kg

DRUGS (1)
  1. WELLBUTRIN XL [Suspect]
     Route: 048
     Dates: start: 20040115, end: 20040414

REACTIONS (1)
  - BLOOD PRESSURE INCREASED [None]
